FAERS Safety Report 9222880 (Version 1)
Quarter: 2013Q1

REPORT INFORMATION
  Report Type: Spontaneous
  Country: US (occurrence: None)
  Receive Date: 20120914
  Receipt Date: 20120914
  Transmission Date: 20140127
  Serious: Yes (Other)
  Sender: FDA-Public Use
  Company Number: JPI-P-019494

PATIENT
  Age: 45 Year
  Sex: Female
  Weight: 64.41 kg

DRUGS (7)
  1. XYREM (500 MILLIGRAM/MILLILITERS, SOLUTION) (SODIUM OXYBATE) [Suspect]
     Indication: NARCOLEPSY
     Dosage: 2.25 GM, 2 IN 1 D
     Route: 048
     Dates: start: 20120121, end: 201201
  2. SPIRONOLACTONE [Concomitant]
  3. PENTOSAN POLYSULFATE SODIUM [Concomitant]
  4. CYPROHEPATADINE [Concomitant]
  5. ARMODAFINIL [Concomitant]
  6. VITAMIN B COMPLEX [Concomitant]
  7. OMEGA OILS [Concomitant]

REACTIONS (5)
  - Blood pressure increased [None]
  - Palpitations [None]
  - Headache [None]
  - Chest discomfort [None]
  - Chest discomfort [None]
